FAERS Safety Report 19131260 (Version 1)
Quarter: 2021Q2

REPORT INFORMATION
  Report Type: Spontaneous
  Country: AE (occurrence: AE)
  Receive Date: 20210414
  Receipt Date: 20210414
  Transmission Date: 20210717
  Serious: Yes (Other)
  Sender: FDA-Public Use
  Company Number: AE-SUN PHARMACEUTICAL INDUSTRIES LTD-2021RR-291112

PATIENT
  Age: 41 Year
  Sex: Male

DRUGS (4)
  1. FAVIPIRAVIR [Suspect]
     Active Substance: FAVIPIRAVIR
     Indication: CARDIAC FAILURE
     Dosage: 1600 MILLIGRAM, BID ON DAY 1
     Route: 048
  2. FAVIPIRAVIR [Suspect]
     Active Substance: FAVIPIRAVIR
     Dosage: 600 MILLIGRAM, TID
     Route: 048
  3. ASPIRIN. [Suspect]
     Active Substance: ASPIRIN
     Indication: PRODUCT USED FOR UNKNOWN INDICATION
     Dosage: UNK
     Route: 065
  4. TICAGRELOR. [Concomitant]
     Active Substance: TICAGRELOR
     Indication: PRODUCT USED FOR UNKNOWN INDICATION
     Dosage: UNK
     Route: 065

REACTIONS (2)
  - Haemolytic anaemia [Unknown]
  - Lymphocyte count decreased [Unknown]
